FAERS Safety Report 4675755-1 (Version None)
Quarter: 2005Q2

REPORT INFORMATION
  Report Type: 
  Country: None (occurrence: None)
  Receive Date: 20050527
  Receipt Date: 20050329
  Transmission Date: 20051028
  Serious: No
  Sender: FDA-Public Use
  Company Number: US-BRISTOL-MYERS SQUIBB COMPANY-12913554

PATIENT
  Age: 86 Year
  Sex: Male
  Weight: 96 kg

DRUGS (3)
  1. ERBITUX [Suspect]
     Indication: COLORECTAL CANCER
     Dosage: INTERRUPTED FOR ONE WEEK.
     Route: 042
     Dates: start: 20050322, end: 20050322
  2. BENADRYL [Concomitant]
     Indication: PREMEDICATION
     Route: 042
     Dates: start: 20050322, end: 20050322
  3. IRINOTECAN [Concomitant]

REACTIONS (1)
  - CONJUNCTIVITIS [None]
